FAERS Safety Report 16554005 (Version 4)
Quarter: 2019Q3

REPORT INFORMATION
  Report Type: Report from Study
  Country: GB (occurrence: GB)
  Receive Date: 20190710
  Receipt Date: 20190926
  Transmission Date: 20191004
  Serious: Yes (Hospitalization)
  Sender: FDA-Public Use
  Company Number: GB-MYLANLABS-2019M1062897

PATIENT
  Sex: Female

DRUGS (86)
  1. PARACETAMOL [Concomitant]
     Active Substance: ACETAMINOPHEN
     Indication: VOMITING
     Dosage: 4000 MILLIGRAM, QD
     Route: 042
     Dates: start: 20160718
  2. LORAZEPAM. [Concomitant]
     Active Substance: LORAZEPAM
     Dosage: 1 MILLIGRAM, QD
     Route: 048
     Dates: start: 201809
  3. DOCUSATE SODIUM. [Concomitant]
     Active Substance: DOCUSATE SODIUM
     Dosage: 300 MILLIGRAM, QD
     Route: 048
     Dates: start: 20160516
  4. CYCLIZINE [Concomitant]
     Active Substance: CYCLIZINE
     Indication: NAUSEA
     Dosage: 150 MILLIGRAM, QD
     Route: 048
     Dates: start: 201603, end: 201607
  5. DICLOFENAC [Concomitant]
     Active Substance: DICLOFENAC
     Indication: BACK PAIN
     Dosage: 50 MILLIGRAM
     Route: 048
     Dates: start: 20150721, end: 201508
  6. ORAMORPH [Concomitant]
     Active Substance: MORPHINE SULFATE
     Indication: BACK PAIN
     Dosage: 20 MILLIGRAM
     Route: 048
     Dates: start: 20150513, end: 20150518
  7. TAZOCIN [Concomitant]
     Active Substance: PIPERACILLIN SODIUM\TAZOBACTAM SODIUM
     Dosage: 13.5 MILLIGRAM, QD
     Route: 042
     Dates: start: 20181222, end: 20181222
  8. CYCLIZINE [Concomitant]
     Active Substance: CYCLIZINE
     Dosage: 1 UNK, PRN
     Route: 042
     Dates: start: 20190119, end: 20190122
  9. BECLOMETASONE [Concomitant]
     Active Substance: BECLOMETHASONE DIPROPIONATE
     Indication: ASTHMA
     Dosage: 1 UNK, PRN (AEROSOL IH (INHALED) )
     Route: 065
     Dates: start: 201901
  10. PACLITAXEL. [Suspect]
     Active Substance: PACLITAXEL
     Indication: BREAST CANCER METASTATIC
     Dosage: 183 MILLIGRAM, QW
     Route: 042
     Dates: start: 20150326, end: 20150812
  11. HALOPERIDOL. [Concomitant]
     Active Substance: HALOPERIDOL
     Dosage: 5 MILLIGRAM, QD
     Route: 058
     Dates: start: 20160509
  12. PARACETAMOL [Concomitant]
     Active Substance: ACETAMINOPHEN
     Indication: OVARIAN CYST
     Dosage: 1 GRAM
     Route: 042
     Dates: start: 20160508, end: 20160508
  13. AMOXICILLIN. [Concomitant]
     Active Substance: AMOXICILLIN
     Indication: NASOPHARYNGITIS
     Dosage: 1500 MILLIGRAM, QD
     Route: 048
     Dates: start: 20151007, end: 20151013
  14. ORAMORPH [Concomitant]
     Active Substance: MORPHINE SULFATE
     Dosage: 10 MILLIGRAM
     Route: 065
     Dates: start: 20150918, end: 20150919
  15. AMITRIPTYLINE [Concomitant]
     Active Substance: AMITRIPTYLINE
     Dosage: 150 MILLIGRAM, PRN
     Route: 048
     Dates: start: 201809
  16. NYSTATIN. [Concomitant]
     Active Substance: NYSTATIN
     Dosage: 4, QD 100000 U
     Route: 050
     Dates: start: 201603, end: 20160330
  17. TAZOCIN [Concomitant]
     Active Substance: PIPERACILLIN SODIUM\TAZOBACTAM SODIUM
     Indication: LOWER RESPIRATORY TRACT INFECTION
     Dosage: 13.5 MILLIGRAM, QD
     Route: 042
     Dates: start: 20160304, end: 20160309
  18. LIDOCAINE. [Concomitant]
     Active Substance: LIDOCAINE
     Indication: BACK PAIN
     Dosage: 5 PERCENT
     Route: 062
     Dates: start: 20151109, end: 201603
  19. CYCLIZINE [Concomitant]
     Active Substance: CYCLIZINE
     Indication: NAUSEA
     Dosage: 150 MILLIGRAM, QD
     Route: 042
     Dates: start: 20160717, end: 20160718
  20. CYCLIZINE [Concomitant]
     Active Substance: CYCLIZINE
     Dosage: 50 UNK
     Route: 042
     Dates: start: 20160508, end: 20160509
  21. SENNA                              /00142201/ [Concomitant]
     Active Substance: SENNA LEAF
     Indication: CONSTIPATION
     Dosage: 7.5 MILLIGRAM, QD
     Route: 048
     Dates: start: 20160512
  22. TRASTUZUMAB. [Suspect]
     Active Substance: TRASTUZUMAB
     Indication: BREAST CANCER METASTATIC
     Dosage: 600 MILLIGRAM, Q3W
     Route: 058
     Dates: start: 20150326, end: 20160211
  23. LORAZEPAM. [Concomitant]
     Active Substance: LORAZEPAM
     Indication: ANXIETY
     Dosage: 3 MILLIGRAM, QD
     Route: 048
     Dates: start: 201603, end: 201603
  24. DALTEPARIN [Concomitant]
     Active Substance: DALTEPARIN
     Dosage: 5000 INTERNATIONAL UNIT, QD
     Route: 058
     Dates: start: 20160508, end: 20160516
  25. METOCLOPRAMIDE. [Concomitant]
     Active Substance: METOCLOPRAMIDE
     Dosage: 30 MILLIGRAM, QD
     Route: 065
     Dates: start: 20150813
  26. GABAPENTIN. [Concomitant]
     Active Substance: GABAPENTIN
     Dosage: 900 MILLIGRAM, QD
     Route: 048
     Dates: start: 201304
  27. CODEINE [Concomitant]
     Active Substance: CODEINE
     Dosage: 15 GRAM
     Route: 048
     Dates: start: 201504
  28. NYSTATIN. [Concomitant]
     Active Substance: NYSTATIN
     Indication: MUCOSAL INFLAMMATION
     Dosage: 4, 100000 U
     Route: 048
     Dates: start: 20160516
  29. AMOXICILLIN. [Concomitant]
     Active Substance: AMOXICILLIN
     Dosage: 500 MILLIGRAM
     Route: 048
     Dates: start: 20190121, end: 20190123
  30. PARACETAMOL [Concomitant]
     Active Substance: ACETAMINOPHEN
     Dosage: 4000 MILLIGRAM, QD
     Route: 042
     Dates: start: 20160718
  31. TRAMADOL. [Concomitant]
     Active Substance: TRAMADOL
     Indication: PAIN
     Dosage: 50 MILLIGRAM, PRN
     Route: 048
     Dates: start: 20181220, end: 20181221
  32. SENNA                              /00142201/ [Concomitant]
     Active Substance: SENNA LEAF
     Dosage: UNK
     Route: 048
     Dates: start: 201605
  33. PARACETAMOL [Concomitant]
     Active Substance: ACETAMINOPHEN
     Dosage: 1000 GRAM
     Route: 048
     Dates: start: 201504
  34. CYSTITIS RELIEF                    /00609201/ [Concomitant]
     Dosage: 1 SACHET
     Route: 048
     Dates: start: 201503
  35. CYCLIZINE [Concomitant]
     Active Substance: CYCLIZINE
     Dosage: 50 MILLIGRAM, PRN
     Route: 048
     Dates: start: 20181220, end: 20181220
  36. DOCUSATE [Concomitant]
     Active Substance: DOCUSATE
     Dosage: 300 MILLIGRAM, QD
     Route: 048
     Dates: start: 20160405, end: 20160516
  37. BUSCOPAN [Concomitant]
     Active Substance: BUTYLSCOPOLAMINE BROMIDE
     Dosage: 60 MILLIGRAM, QD
     Route: 048
     Dates: start: 20150721
  38. HALOPERIDOL. [Concomitant]
     Active Substance: HALOPERIDOL
     Dosage: 1.5 MILLIGRAM, QD
     Route: 048
     Dates: start: 200109
  39. PARACETAMOL [Concomitant]
     Active Substance: ACETAMINOPHEN
     Dosage: 4000 MILLIGRAM, QD
     Route: 042
     Dates: start: 20190116, end: 20190120
  40. PARACETAMOL [Concomitant]
     Active Substance: ACETAMINOPHEN
     Dosage: 1 GRAM
     Route: 042
     Dates: start: 20160508, end: 20160508
  41. SENNA                              /00142201/ [Concomitant]
     Active Substance: SENNA LEAF
     Dosage: UNK
     Route: 048
     Dates: start: 201505, end: 201505
  42. CASSIA ACUTIFOLIA [Concomitant]
     Dosage: UNK
     Route: 048
     Dates: start: 201603
  43. LORAZEPAM. [Concomitant]
     Active Substance: LORAZEPAM
     Dosage: 1 MILLIGRAM, QD
     Route: 048
     Dates: start: 20160512
  44. DALTEPARIN [Concomitant]
     Active Substance: DALTEPARIN
     Dosage: 1 UNK, QD
     Route: 058
     Dates: start: 20160717, end: 20160722
  45. DOXYCYCLINE. [Concomitant]
     Active Substance: DOXYCYCLINE
     Dosage: 100 MILLIGRAM
     Route: 048
     Dates: start: 20150722, end: 20150728
  46. DIAZEPAM. [Concomitant]
     Active Substance: DIAZEPAM
     Indication: BACK PAIN
     Dosage: 2 MILLIGRAM
     Route: 048
     Dates: start: 20150629, end: 201603
  47. HALOPERIDOL. [Concomitant]
     Active Substance: HALOPERIDOL
     Indication: ANXIETY
     Dosage: 15 MILLIGRAM
     Route: 048
     Dates: start: 201603, end: 201603
  48. HALOPERIDOL. [Concomitant]
     Active Substance: HALOPERIDOL
     Dosage: 1.5 MILLIGRAM
     Route: 048
     Dates: start: 201603, end: 201603
  49. LEVOMEPROMAZINE [Concomitant]
     Active Substance: LEVOMEPROMAZINE
     Dosage: 6.25 MILLIGRAM, PRN
     Route: 042
     Dates: start: 20190116, end: 20190117
  50. TRASTUZUMAB. [Suspect]
     Active Substance: TRASTUZUMAB
     Indication: BREAST CANCER METASTATIC
     Dosage: 350 MILLIGRAM, Q3W
     Route: 042
     Dates: start: 20160303, end: 20160324
  51. TRASTUZUMAB. [Suspect]
     Active Substance: TRASTUZUMAB
     Dosage: 280 MILLIGRAM, Q3W
     Route: 042
     Dates: start: 20160421, end: 20161124
  52. PARACETAMOL [Concomitant]
     Active Substance: ACETAMINOPHEN
     Dosage: 1 GRAM
     Route: 065
     Dates: start: 20150918, end: 20150919
  53. CASSIA ACUTIFOLIA [Concomitant]
     Indication: CONSTIPATION
     Dosage: 7.5 MILLIGRAM, QD
     Route: 048
     Dates: start: 20160512
  54. DALTEPARIN [Concomitant]
     Active Substance: DALTEPARIN
     Dosage: 5000 INTERNATIONAL UNIT
     Route: 058
     Dates: start: 20190116, end: 20190119
  55. CHLORHEXIDINE [Concomitant]
     Active Substance: CHLORHEXIDINE
     Indication: MUCOSAL INFLAMMATION
     Dosage: 20 MILLIGRAM
     Route: 048
     Dates: start: 201603
  56. AMITRIPTYLINE [Concomitant]
     Active Substance: AMITRIPTYLINE
     Indication: ANXIETY
     Dosage: 20 MILLIGRAM
     Route: 048
     Dates: start: 20160228, end: 20160302
  57. MACROGOL [Concomitant]
     Active Substance: POLYETHYLENE GLYCOLS
     Dosage: 2, QD
     Route: 048
     Dates: start: 20160718, end: 20160722
  58. DOCUSATE [Concomitant]
     Active Substance: DOCUSATE
     Indication: CONSTIPATION
     Dosage: 400 MILLIGRAM, QD
     Route: 048
     Dates: start: 201603
  59. DOCUSATE [Concomitant]
     Active Substance: DOCUSATE
     Dosage: 300 UNK, QD
     Route: 048
     Dates: start: 20160516
  60. DULOXETINE. [Concomitant]
     Active Substance: DULOXETINE
     Indication: ANXIETY
     Dosage: 120 MILLIGRAM, QD
     Route: 048
     Dates: start: 201603
  61. TRASTUZUMAB. [Suspect]
     Active Substance: TRASTUZUMAB
     Dosage: 350 MILLIGRAM, Q3W
     Route: 042
     Dates: start: 20160303, end: 20160421
  62. PERTUZUMAB. [Suspect]
     Active Substance: PERTUZUMAB
     Indication: BREAST CANCER METASTATIC
     Dosage: 420 MILLIGRAM
     Route: 042
     Dates: start: 20150416, end: 20160211
  63. CASSIA ACUTIFOLIA [Concomitant]
     Dosage: 7.5 MILLIGRAM, QD
     Route: 048
     Dates: start: 201505, end: 201505
  64. CASSIA ACUTIFOLIA [Concomitant]
     Dosage: UNK, MONTHLY
     Route: 048
     Dates: start: 201603
  65. DOCUSATE SODIUM. [Concomitant]
     Active Substance: DOCUSATE SODIUM
     Indication: CONSTIPATION
     Dosage: 300 MILLIGRAM, QD
     Route: 048
     Dates: start: 20160405, end: 20160516
  66. DOCUSATE SODIUM. [Concomitant]
     Active Substance: DOCUSATE SODIUM
     Dosage: 400 MILLIGRAM, QD
     Route: 048
     Dates: start: 201603, end: 20160405
  67. COCODAMOL [Concomitant]
     Active Substance: ACETAMINOPHEN\CODEINE PHOSPHATE
     Indication: CHOLECYSTITIS
     Dosage: 500 MILLIGRAM
     Route: 048
     Dates: start: 20151109, end: 201601
  68. METOCLOPRAMIDE. [Concomitant]
     Active Substance: METOCLOPRAMIDE
     Indication: VOMITING
     Dosage: 10 MILLIGRAM
     Route: 065
     Dates: start: 20150326, end: 201505
  69. CYCLIZINE [Concomitant]
     Active Substance: CYCLIZINE
     Dosage: 50 MILLIGRAM, PRN
     Route: 048
     Dates: start: 201809
  70. MACROGOL [Concomitant]
     Active Substance: POLYETHYLENE GLYCOLS
     Dosage: 2 SACHET
     Route: 048
     Dates: start: 201505, end: 201506
  71. DIFFLAM [Concomitant]
     Active Substance: BENZYDAMINE HYDROCHLORIDE
     Indication: MUCOSAL INFLAMMATION
     Dosage: 15 MILLIGRAM
     Route: 048
     Dates: start: 201603, end: 20160330
  72. AMOXICILLIN. [Concomitant]
     Active Substance: AMOXICILLIN
     Indication: LOWER RESPIRATORY TRACT INFECTION
     Dosage: 1500 MILLIGRAM, QD
     Route: 048
     Dates: start: 20160309, end: 20160312
  73. PARACETAMOL [Concomitant]
     Active Substance: ACETAMINOPHEN
     Dosage: 4000 MILLIGRAM, QD
     Route: 042
     Dates: start: 20181220, end: 20181220
  74. SALBUTAMOL [Concomitant]
     Active Substance: ALBUTEROL
     Indication: ASTHMA
     Dosage: AEROSOL IH (INHALED)
     Route: 048
     Dates: start: 201901
  75. TRASTUZUMAB. [Suspect]
     Active Substance: TRASTUZUMAB
     Dosage: 290 MILLIGRAM, Q3W
     Route: 042
     Dates: start: 20170209, end: 20171123
  76. PERTUZUMAB. [Suspect]
     Active Substance: PERTUZUMAB
     Dosage: 840 MILLIGRAM, Q3W LOADING DOSE AS PER PROTOCOL
     Route: 042
     Dates: start: 20150326
  77. ZOMORPH [Concomitant]
     Active Substance: MORPHINE SULFATE
     Indication: BACK PAIN
     Dosage: 20 MILLIGRAM
     Route: 048
     Dates: start: 20150710
  78. DALTEPARIN [Concomitant]
     Active Substance: DALTEPARIN
     Indication: PERIPHERAL SWELLING
     Dosage: 18000 UNITS
     Route: 058
     Dates: start: 20150504, end: 20151027
  79. OMEPRAZOLE. [Concomitant]
     Active Substance: OMEPRAZOLE
     Indication: GASTROOESOPHAGEAL REFLUX DISEASE
     Dosage: 20 MILLIGRAM
     Route: 048
     Dates: start: 201505
  80. BRUFEN                             /00109201/ [Concomitant]
     Active Substance: IBUPROFEN
     Indication: BACK PAIN
     Dosage: 1200 MILLIGRAM, QD
     Route: 048
     Dates: start: 20150509
  81. METOCLOPRAMIDE. [Concomitant]
     Active Substance: METOCLOPRAMIDE
     Dosage: 30 MILLIGRAM, QD
     Route: 042
     Dates: start: 20160719, end: 20160722
  82. DOXYCYCLINE. [Concomitant]
     Active Substance: DOXYCYCLINE
     Dosage: 200 MILLIGRAM
     Route: 048
     Dates: start: 20150721, end: 20150721
  83. TRIMETHOPRIM. [Concomitant]
     Active Substance: TRIMETHOPRIM
     Indication: URINARY TRACT INFECTION
     Dosage: 400 MILLIGRAM, QD
     Route: 048
     Dates: start: 20150604, end: 20150606
  84. DOCUSATE [Concomitant]
     Active Substance: DOCUSATE
     Dosage: UNK
     Route: 048
     Dates: start: 201603, end: 20160405
  85. BUSCOPAN [Concomitant]
     Active Substance: BUTYLSCOPOLAMINE BROMIDE
     Indication: DIARRHOEA
     Dosage: 10 MILLIGRAM
     Route: 048
     Dates: start: 20160405
  86. CREON [Concomitant]
     Active Substance: PANCRELIPASE AMYLASE\PANCRELIPASE LIPASE\PANCRELIPASE PROTEASE
     Dosage: 1 UNK, PRN
     Route: 048
     Dates: start: 201809

REACTIONS (29)
  - Abdominal pain upper [Recovered/Resolved with Sequelae]
  - Fatigue [Not Recovered/Not Resolved]
  - Condition aggravated [Unknown]
  - Nasopharyngitis [Unknown]
  - Depressed mood [Not Recovered/Not Resolved]
  - Hypoaesthesia [Not Recovered/Not Resolved]
  - Diarrhoea [Recovered/Resolved]
  - Anaemia [Recovered/Resolved]
  - Abdominal pain [Recovered/Resolved]
  - Vomiting [Recovered/Resolved]
  - Pain [Not Recovered/Not Resolved]
  - Headache [Not Recovered/Not Resolved]
  - Constipation [Unknown]
  - Gastrointestinal disorder [Not Recovered/Not Resolved]
  - Gingival bleeding [Recovered/Resolved]
  - Peripheral swelling [Recovered/Resolved]
  - Urinary tract infection [Recovered/Resolved with Sequelae]
  - Nausea [Not Recovered/Not Resolved]
  - Rhinorrhoea [Recovered/Resolved]
  - Condition aggravated [Recovered/Resolved with Sequelae]
  - Dizziness [Not Recovered/Not Resolved]
  - Alanine aminotransferase increased [Not Recovered/Not Resolved]
  - Mucosal inflammation [Recovered/Resolved]
  - Lower respiratory tract infection [Recovered/Resolved]
  - Gastroenteritis viral [Recovered/Resolved]
  - Viral infection [Recovered/Resolved]
  - Insomnia [Not Recovered/Not Resolved]
  - Anxiety [Not Recovered/Not Resolved]
  - Back pain [Recovered/Resolved with Sequelae]

NARRATIVE: CASE EVENT DATE: 201505
